FAERS Safety Report 7650842-4 (Version None)
Quarter: 2011Q3

REPORT INFORMATION
  Report Type: 
  Country: None (occurrence: None)
  Receive Date: 20110727
  Receipt Date: 20110715
  Transmission Date: 20111222
  Serious: Yes (Hospitalization)
  Sender: FDA-Public Use
  Company Number: 2011SP033439

PATIENT
  Age: 58 Year
  Sex: Female

DRUGS (8)
  1. LEXOTAN [Concomitant]
  2. LEVOTHYROXINE SODIUM [Concomitant]
  3. AMITRIPTYLINE HCL [Concomitant]
  4. OMEPRAZOLE [Concomitant]
  5. REBETOL [Suspect]
     Indication: HEPATITIS C
     Dosage: 1000 MG, QD, PO
     Route: 048
     Dates: start: 20110111, end: 20110707
  6. DEURSIL [Concomitant]
  7. PEGASYS [Suspect]
     Indication: HEPATITIS C
     Dosage: 180 MCG, QW, SC
     Route: 058
     Dates: start: 20110111, end: 20110705
  8. ZOLOFT [Concomitant]

REACTIONS (10)
  - HEPATITIS C [None]
  - DROP ATTACKS [None]
  - SUBARACHNOID HAEMORRHAGE [None]
  - GRAVITATIONAL OEDEMA [None]
  - AFFECTIVE DISORDER [None]
  - PSYCHOMOTOR RETARDATION [None]
  - CONDITION AGGRAVATED [None]
  - HEAD INJURY [None]
  - AGGRESSION [None]
  - ASTHENIA [None]
